FAERS Safety Report 4388983-X (Version None)
Quarter: 2004Q3

REPORT INFORMATION
  Report Type: 
  Country: None (occurrence: None)
  Receive Date: 20040702
  Receipt Date: 20040621
  Transmission Date: 20050211
  Serious: Yes (Other)
  Sender: FDA-Public Use
  Company Number: PHHO2004PH08756

PATIENT
  Sex: 0

DRUGS (1)
  1. GLEEVEC [Suspect]

REACTIONS (2)
  - GRANULOCYTES MATURATION ARREST [None]
  - LEUKOCYTOSIS [None]
